FAERS Safety Report 25289990 (Version 1)
Quarter: 2025Q2

REPORT INFORMATION
  Report Type: Spontaneous
  Country: US (occurrence: US)
  Receive Date: 20250509
  Receipt Date: 20250509
  Transmission Date: 20250716
  Serious: No
  Sender: DAIICHI
  Company Number: US-DAIICHI SANKYO, INC.-DS-2025-139591-USAA

PATIENT
  Sex: Female

DRUGS (1)
  1. VANFLYTA [Suspect]
     Active Substance: QUIZARTINIB DIHYDROCHLORIDE
     Indication: Acute myeloid leukaemia
     Dosage: 35.4 MG, QD (ON DAYS 6-19 EVERY 28 DAYS)
     Route: 048
     Dates: start: 20250415

REACTIONS (3)
  - Erythema [Recovered/Resolved]
  - Contusion [Recovered/Resolved]
  - Platelet count decreased [Recovered/Resolved]
